FAERS Safety Report 9782380 (Version 2)
Quarter: 2013Q4

REPORT INFORMATION
  Report Type: Spontaneous
  Country: GB (occurrence: GB)
  Receive Date: 20131226
  Receipt Date: 20131226
  Transmission Date: 20140711
  Serious: Yes (Other)
  Sender: FDA-Public Use
  Company Number: PHFR2013GB005860

PATIENT
  Age: 29 Year
  Sex: Male

DRUGS (9)
  1. CLOZARIL [Suspect]
     Indication: SCHIZOPHRENIA
     Dosage: UNK
     Route: 048
     Dates: start: 20130903
  2. CLOZARIL [Suspect]
     Dosage: UNK
  3. PREGABALIN [Concomitant]
     Indication: ANXIETY
     Dosage: 600 MG, DAILY
     Route: 048
  4. LITHIUM [Concomitant]
     Dosage: 800 MG
     Route: 048
  5. CHLORPROMAZINE [Concomitant]
     Dosage: 200 MG
     Route: 048
  6. METHADONE [Concomitant]
     Indication: DEPENDENCE
     Dosage: 40 MG
     Route: 048
  7. METHADONE [Concomitant]
     Dosage: 37 MG, DAILY
     Route: 048
  8. DIAZEPAM [Concomitant]
     Indication: ANXIETY
     Dosage: 10 MG, DAILY
     Route: 048
  9. ZOPICLONE [Concomitant]
     Dosage: 7.5 MG, DAILY
     Route: 048

REACTIONS (6)
  - Myocarditis [Recovered/Resolved]
  - Chest pain [Unknown]
  - Electrocardiogram QT prolonged [Unknown]
  - Intentional self-injury [Unknown]
  - White blood cell count increased [Unknown]
  - Neutrophil count increased [Unknown]
